FAERS Safety Report 17449920 (Version 1)
Quarter: 2020Q3

REPORT INFORMATION
  Report Type: Spontaneous
  Country: DE (occurrence: DE)
  Receive Date: 20200224
  Receipt Date: 20200224
  Transmission Date: 20201104
  Serious: Yes (Death, Hospitalization)
  Sender: FDA-Public Use
  Company Number: DE-DRREDDYS-GER/GER/20/0119858

PATIENT
  Age: 87 Year
  Sex: Female

DRUGS (6)
  1. CARBIMAZOL [Concomitant]
     Active Substance: CARBIMAZOLE
     Indication: PRODUCT USED FOR UNKNOWN INDICATION
     Dosage: 10 MG, 0.5?0?0?0
  2. TORASEMID [Suspect]
     Active Substance: TORSEMIDE
     Indication: PRODUCT USED FOR UNKNOWN INDICATION
     Dosage: 5 MG, 1?0?0?0
  3. ETORICOXIB. [Suspect]
     Active Substance: ETORICOXIB
     Indication: PRODUCT USED FOR UNKNOWN INDICATION
     Dosage: 60 MG, BEI BEDARF
  4. IBUPROFEN. [Suspect]
     Active Substance: IBUPROFEN
     Indication: PRODUCT USED FOR UNKNOWN INDICATION
     Dosage: 200 MG, 1X
  5. ACETYLSALICYLSAEURE [Concomitant]
     Active Substance: ASPIRIN
     Indication: PRODUCT USED FOR UNKNOWN INDICATION
     Dosage: 100 MG, 1?0?0?0
  6. BISOPROLOL [Suspect]
     Active Substance: BISOPROLOL
     Indication: PRODUCT USED FOR UNKNOWN INDICATION
     Dosage: 2.5 MG, 0.5?0?0?0

REACTIONS (5)
  - Vomiting [Unknown]
  - Syncope [Unknown]
  - Cardiac failure [Unknown]
  - Oedema peripheral [Unknown]
  - Abdominal distension [Unknown]
